FAERS Safety Report 6579386-8 (Version None)
Quarter: 2010Q1

REPORT INFORMATION
  Report Type: 
  Country: None (occurrence: None)
  Receive Date: 20100209
  Receipt Date: 20100209
  Transmission Date: 20100710
  Serious: Yes (Hospitalization)
  Sender: FDA-Public Use
  Company Number: None

PATIENT
  Age: 66 Year
  Sex: Male

DRUGS (12)
  1. SIMVASTATIN [Suspect]
     Indication: HYPERLIPIDAEMIA
     Dosage: 40MG  DAILY PO
     Route: 048
  2. FENOFIBRATE [Suspect]
     Indication: HYPERLIPIDAEMIA
     Dosage: 40MG DAILY PO
     Route: 048
     Dates: start: 20060701, end: 20081101
  3. NEORAL [Concomitant]
  4. MYCOPHENOLATE MOEFETIL [Concomitant]
  5. OMEPRAZOLE [Concomitant]
  6. MIRALAX [Concomitant]
  7. DILTIAZEM HCL [Concomitant]
  8. CLOPIDOGREL [Concomitant]
  9. CENTRUM [Concomitant]
  10. BACTRIM [Concomitant]
  11. CLARITIN [Concomitant]
  12. OSCAL [Concomitant]

REACTIONS (4)
  - GASTROENTERITIS [None]
  - HYPOPHOSPHATAEMIA [None]
  - RHABDOMYOLYSIS [None]
  - VIRAL MYOSITIS [None]
